FAERS Safety Report 5029251-2 (Version None)
Quarter: 2006Q2

REPORT INFORMATION
  Report Type: 
  Country: None (occurrence: None)
  Receive Date: 20060613
  Receipt Date: 20060601
  Transmission Date: 20061013
  Serious: Yes (Other)
  Sender: FDA-Public Use
  Company Number: HQWYE642901JUN06

PATIENT
  Age: 55 Year
  Sex: Male
  Weight: 69.46 kg

DRUGS (6)
  1. ZOSYN [Suspect]
     Indication: PERITONITIS
     Dosage: UNKNOWN, INTRAVENOUS
     Route: 042
     Dates: start: 20051101, end: 20051101
  2. SUTENT [Suspect]
     Indication: METASTATIC RENAL CELL CARCINOMA
     Dosage: 50 MG DAILY FOR 28 DAYS, ORAL
     Route: 048
     Dates: start: 20051108, end: 20051122
  3. OXYCONTIN [Concomitant]
  4. PERCOCET [Concomitant]
  5. COLACE (DOCUSATE SODIUM) [Concomitant]
  6. PROTONIX [Concomitant]

REACTIONS (2)
  - HYPERBILIRUBINAEMIA [None]
  - POST PROCEDURAL COMPLICATION [None]
